FAERS Safety Report 5170111-4 (Version None)
Quarter: 2006Q4

REPORT INFORMATION
  Report Type: 
  Country: None (occurrence: None)
  Receive Date: 20061201
  Receipt Date: 20061120
  Transmission Date: 20070319
  Serious: Yes (Death)
  Sender: FDA-Public Use
  Company Number: 2006BH014224

PATIENT
  Age: 72 Year
  Sex: Female
  Weight: 95.2554 kg

DRUGS (18)
  1. EXTRANEAL [Suspect]
     Indication: RENAL FAILURE CHRONIC
     Dosage: 2 L; UNK; IP
     Route: 033
  2. DIANEAL [Suspect]
     Indication: RENAL FAILURE CHRONIC
     Dosage: 6 L; UNK; IP
     Route: 033
  3. DIANEAL [Suspect]
     Indication: RENAL FAILURE CHRONIC
     Dosage: 2 L; UNK ; IP
     Route: 033
  4. ASPIRIN [Concomitant]
  5. HECTOROL [Concomitant]
  6. PROCRIT [Concomitant]
  7. PEPCID [Concomitant]
  8. FOLATE [Concomitant]
  9. LASIX [Concomitant]
  10. INSULIN [Concomitant]
  11. LABETALOL HCL [Concomitant]
  12. LEVOTHYROXINE SODIUM [Concomitant]
  13. LISINOPRIL [Concomitant]
  14. MEVACOR [Concomitant]
  15. ZAROXOLYN [Concomitant]
  16. NEPHROVITE [Concomitant]
  17. NIFEDIPINE [Concomitant]
  18. SENOKOT [Concomitant]

REACTIONS (1)
  - DEATH [None]
